FAERS Safety Report 21891676 (Version 2)
Quarter: 2023Q1

REPORT INFORMATION
  Report Type: Spontaneous
  Country: US (occurrence: None)
  Receive Date: 20230120
  Receipt Date: 20230308
  Transmission Date: 20230418
  Serious: Yes (Other)
  Sender: FDA-Public Use
  Company Number: 2023A010680

PATIENT
  Age: 21902 Day
  Sex: Male
  Weight: 90.7 kg

DRUGS (1)
  1. EVUSHELD [Suspect]
     Active Substance: CILGAVIMAB\TIXAGEVIMAB
     Indication: COVID-19 prophylaxis
     Dosage: 300 MG (TIXAGEVIMAB 150 MG/CILGAVIMAB 150 MG)300.0MG AS REQUIRED
     Route: 030
     Dates: start: 20220415

REACTIONS (1)
  - Open angle glaucoma [Not Recovered/Not Resolved]

NARRATIVE: CASE EVENT DATE: 20220501
